FAERS Safety Report 8729385 (Version 3)
Quarter: 2012Q4

REPORT INFORMATION
  Report Type: 
  Country: CH (occurrence: CH)
  Receive Date: 20120817
  Receipt Date: 20121109
  Transmission Date: 20130627
  Serious: Yes (Hospitalization)
  Sender: FDA-Public Use
  Company Number: CH-PFIZER INC-2012199344

PATIENT
  Age: 78 Year
  Sex: Male
  Weight: 74.5 kg

DRUGS (12)
  1. ALDACTONE [Suspect]
     Indication: HYPERTENSIVE HEART DISEASE
     Dosage: 25 mg, 1x/day
     Route: 048
     Dates: start: 201204, end: 20120621
  2. NEBILET [Suspect]
     Indication: HYPERTENSIVE HEART DISEASE
     Dosage: 2.5 mg, 1x/day
     Route: 048
     Dates: start: 200707, end: 20120621
  3. ATACAND [Interacting]
     Indication: HYPERTENSIVE HEART DISEASE
     Dosage: 8 mg, 1x/day
     Route: 048
     Dates: start: 200707, end: 20120621
  4. MEPHANOL [Concomitant]
     Dosage: 300 mg, 1x/day
     Route: 048
     Dates: end: 201206
  5. ASPIRIN CARDIO [Concomitant]
     Dosage: 100 mg, 1x/day
     Route: 048
  6. TOREM [Concomitant]
     Dosage: 50 mg, 1x/day
     Route: 048
  7. SORTIS [Concomitant]
     Dosage: 40 mg, 1x/day
     Route: 048
  8. LANTUS [Concomitant]
     Dosage: 20 IU, 1x/day
     Route: 058
  9. HUMALOG [Concomitant]
     Dosage: as needed
     Route: 058
  10. VI-DE 3 [Concomitant]
     Dosage: 4500 IU, 1x/day
     Route: 048
  11. CALCIMAGON-D3 [Concomitant]
     Dosage: 1 DF, 1x/day
     Route: 048
  12. MARCOUMAR [Concomitant]
     Dosage: as needed
     Route: 048
     Dates: start: 201205

REACTIONS (7)
  - Hyperkalaemia [Recovered/Resolved]
  - Bradycardia [Recovered/Resolved]
  - Renal failure chronic [Recovered/Resolved]
  - Hypotension [Recovered/Resolved]
  - Dyspnoea [Recovered/Resolved]
  - Malaise [Recovered/Resolved]
  - Drug interaction [Recovered/Resolved]
